FAERS Safety Report 22026662 (Version 1)
Quarter: 2023Q1

REPORT INFORMATION
  Report Type: Spontaneous
  Country: US (occurrence: None)
  Receive Date: 20230223
  Receipt Date: 20230223
  Transmission Date: 20230418
  Serious: No
  Sender: FDA-Public Use
  Company Number: US-ROCHE-3182361

PATIENT
  Sex: Female
  Weight: 68.100 kg

DRUGS (10)
  1. XOLAIR [Suspect]
     Active Substance: OMALIZUMAB
     Indication: Asthma
     Dosage: 150 MG/1 ML ;ONGOING: NO
     Route: 058
  2. XOLAIR [Suspect]
     Active Substance: OMALIZUMAB
  3. XOLAIR [Suspect]
     Active Substance: OMALIZUMAB
  4. XOLAIR [Suspect]
     Active Substance: OMALIZUMAB
     Dosage: 150MG/ML
     Route: 058
  5. XOLAIR [Suspect]
     Active Substance: OMALIZUMAB
  6. XOLAIR [Suspect]
     Active Substance: OMALIZUMAB
  7. ALBUTEROL [Concomitant]
     Active Substance: ALBUTEROL
     Indication: Asthma
  8. SYMBICORT [Concomitant]
     Active Substance: BUDESONIDE\FORMOTEROL FUMARATE DIHYDRATE
     Indication: Asthma
  9. MONTELUKAST [Concomitant]
     Active Substance: MONTELUKAST SODIUM
     Indication: Asthma
  10. CLARITIN [Concomitant]
     Active Substance: LORATADINE
     Indication: Hypersensitivity

REACTIONS (6)
  - Product dose omission issue [Unknown]
  - Exposure via skin contact [Unknown]
  - Therapeutic response shortened [Unknown]
  - Syringe issue [Unknown]
  - Device defective [Unknown]
  - Malaise [Unknown]

NARRATIVE: CASE EVENT DATE: 20220916
